FAERS Safety Report 12459664 (Version 1)
Quarter: 2016Q2

REPORT INFORMATION
  Report Type: Spontaneous
  Country: GB (occurrence: GB)
  Receive Date: 20160613
  Receipt Date: 20160613
  Transmission Date: 20160815
  Serious: Yes (Hospitalization)
  Sender: FDA-Public Use
  Company Number: GB-TEVA-666217ACC

PATIENT
  Age: 71 Year
  Sex: Male

DRUGS (13)
  1. OMEPRAZOLE. [Concomitant]
     Active Substance: OMEPRAZOLE
     Dosage: 40MG OD
  2. EPIRUBICIN [Suspect]
     Active Substance: EPIRUBICIN
     Dosage: 100MG/50ML
     Dates: start: 20160429
  3. ADCAL-D3 [Concomitant]
     Active Substance: CALCIUM CARBONATE\CHOLECALCIFEROL
     Dosage: I BD
  4. CISPLATIN. [Suspect]
     Active Substance: CISPLATIN
     Dosage: 50MG/50ML
     Dates: start: 20160429
  5. SENNA [Concomitant]
     Active Substance: SENNA LEAF\SENNOSIDES\SENNOSIDES A AND B
  6. CAPECITABINE. [Suspect]
     Active Substance: CAPECITABINE
     Dates: start: 20160429
  7. LACTULOSE. [Concomitant]
     Active Substance: LACTULOSE
  8. CODEINE [Concomitant]
     Active Substance: CODEINE
  9. PARACETAMOL [Concomitant]
     Active Substance: ACETAMINOPHEN
  10. SIMVASTATIN. [Concomitant]
     Active Substance: SIMVASTATIN
     Dosage: 40MG ON
  11. RAMIPRIL. [Suspect]
     Active Substance: RAMIPRIL
     Dates: end: 20160513
  12. BENDROFLUMETHIAZIDE [Suspect]
     Active Substance: BENDROFLUMETHIAZIDE
     Dates: end: 20160513
  13. ALLOPURINOL. [Concomitant]
     Active Substance: ALLOPURINOL
     Dosage: 300MG OD

REACTIONS (10)
  - Generalised erythema [Unknown]
  - Neutropenic sepsis [Recovered/Resolved]
  - Rash vesicular [Recovered/Resolved]
  - Hyponatraemia [Unknown]
  - Hypokalaemia [Unknown]
  - Lethargy [Unknown]
  - Pleuritic pain [Unknown]
  - Acute kidney injury [Recovered/Resolved]
  - Pyrexia [Unknown]
  - Pulmonary embolism [Unknown]

NARRATIVE: CASE EVENT DATE: 20160513
